FAERS Safety Report 9613588 (Version 1)
Quarter: 2013Q4

REPORT INFORMATION
  Report Type: Spontaneous
  Country: GB (occurrence: None)
  Receive Date: 20131008
  Receipt Date: 20131008
  Transmission Date: 20140711
  Serious: Yes (Other)
  Sender: FDA-Public Use
  Company Number: KAD201309-001280

PATIENT
  Age: 55 Year
  Sex: Male

DRUGS (3)
  1. RIBAVIRIN [Suspect]
     Indication: CHRONIC HEPATITIS C
     Route: 048
     Dates: start: 20130115
  2. PEGYLATED INTERFERON [Suspect]
     Indication: CHRONIC HEPATITIS C
     Dosage: INJECTION, SUBCUTANEOUS
     Route: 058
     Dates: start: 20130115
  3. INCIVO [Suspect]
     Indication: CHRONIC HEPATITIS
     Route: 048
     Dates: start: 20130115

REACTIONS (12)
  - Back disorder [None]
  - Back injury [None]
  - Chemical burn of skin [None]
  - Disturbance in attention [None]
  - Cough [None]
  - Dermatitis [None]
  - Dyspnoea exertional [None]
  - Ear pain [None]
  - Joint swelling [None]
  - Myositis [None]
  - Fatigue [None]
  - Impaired work ability [None]
